FAERS Safety Report 9959224 (Version 1)
Quarter: 2014Q1

REPORT INFORMATION
  Report Type: Spontaneous
  Country: US (occurrence: None)
  Receive Date: 20140227
  Receipt Date: 20140227
  Transmission Date: 20141002
  Serious: Yes (Other)
  Sender: FDA-Public Use
  Company Number: AUR-APL-2014-01925

PATIENT
  Age: 66 Year
  Sex: Female

DRUGS (9)
  1. RISPERIDONE [Suspect]
     Indication: AGITATION
     Dosage: 1 MG EVERY 6 HOURS AS NEEDED, UNKNOWN
  2. HALOPERIDOL [Suspect]
     Indication: AGITATION
     Route: 042
  3. QUETIAPINE FUMARATE [Suspect]
     Indication: AGITATION
     Dosage: UNKNOWN
  4. MIDAZOLAM [Concomitant]
  5. MORPHINE [Concomitant]
  6. ALPRAZOLAM [Concomitant]
  7. PROPOFOL [Concomitant]
  8. BUPROPION [Concomitant]
  9. FLUOXETINE [Concomitant]

REACTIONS (5)
  - Atrioventricular block [None]
  - Electrocardiogram QT prolonged [None]
  - Ammonia increased [None]
  - Extrapyramidal disorder [None]
  - Weaning failure [None]
